FAERS Safety Report 24548162 (Version 1)
Quarter: 2024Q4

REPORT INFORMATION
  Report Type: Spontaneous
  Country: IT (occurrence: IT)
  Receive Date: 20241025
  Receipt Date: 20241025
  Transmission Date: 20250115
  Serious: Yes (Hospitalization)
  Sender: STRIDES
  Company Number: IT-STRIDES ARCOLAB LIMITED-2024SP013680

PATIENT
  Age: 65 Year
  Sex: Female

DRUGS (3)
  1. OLANZAPINE [Suspect]
     Active Substance: OLANZAPINE
     Indication: Bipolar disorder
     Dosage: 5 MILLIGRAM, OD
     Route: 065
  2. VALPROIC ACID [Suspect]
     Active Substance: VALPROIC ACID
     Indication: Bipolar disorder
     Dosage: 500 MILLIGRAM, BID
     Route: 065
  3. LITHIUM CARBONATE [Suspect]
     Active Substance: LITHIUM CARBONATE
     Indication: Bipolar disorder
     Dosage: 750 MILLIGRAM, QD
     Route: 065
     Dates: start: 202208

REACTIONS (1)
  - Superinfection [Unknown]

NARRATIVE: CASE EVENT DATE: 20220101
